FAERS Safety Report 7403576-5 (Version None)
Quarter: 2011Q2

REPORT INFORMATION
  Report Type: 
  Country: None (occurrence: None)
  Receive Date: 20110408
  Receipt Date: 20110404
  Transmission Date: 20111010
  Serious: Yes (Other)
  Sender: FDA-Public Use
  Company Number: AU-PFIZER INC-2011076639

PATIENT
  Sex: Male

DRUGS (1)
  1. TORISEL [Suspect]
     Dosage: UNK
     Dates: start: 20100101, end: 20101223

REACTIONS (4)
  - ONYCHOCLASIS [None]
  - HYPOAESTHESIA [None]
  - NEOPLASM MALIGNANT [None]
  - NEOPLASM [None]
